FAERS Safety Report 9802185 (Version 3)
Quarter: 2014Q3

REPORT INFORMATION
  Report Type: Spontaneous
  Country: JP (occurrence: JP)
  Receive Date: 20140107
  Receipt Date: 20140703
  Transmission Date: 20150326
  Serious: Yes (Death, Hospitalization, Other)
  Sender: FDA-Public Use
  Company Number: PHHY2013JP152964

PATIENT
  Age: 68 Year
  Sex: Female

DRUGS (3)
  1. GANCICLOVIR [Suspect]
     Active Substance: GANCICLOVIR
  2. GRANULOCYTE COLONY STIMULATING FACTOR [Concomitant]
     Active Substance: GRANULOCYTE COLONY-STIMULATING FACTOR NOS
  3. NEORAL [Suspect]
     Active Substance: CYCLOSPORINE
     Indication: APLASIA PURE RED CELL
     Route: 048

REACTIONS (11)
  - Malaise [Unknown]
  - Pseudomonas infection [Unknown]
  - Renal impairment [Recovered/Resolved]
  - Bone marrow failure [Unknown]
  - Drug level increased [Unknown]
  - Pneumocystis jirovecii pneumonia [Unknown]
  - Death [Fatal]
  - Decreased appetite [Unknown]
  - Hyponatraemia [Recovered/Resolved]
  - Pneumonia cytomegaloviral [Unknown]
  - Blood immunoglobulin G decreased [Unknown]
